FAERS Safety Report 24762862 (Version 5)
Quarter: 2025Q1

REPORT INFORMATION
  Report Type: Spontaneous
  Country: US (occurrence: US)
  Receive Date: 20241222
  Receipt Date: 20250223
  Transmission Date: 20250409
  Serious: Yes (Disabling, Other)
  Sender: SANOFI AVENTIS
  Company Number: US-SANOFI-02349076

PATIENT
  Age: 58 Year
  Sex: Female
  Weight: 72.73 kg

DRUGS (8)
  1. DUPIXENT [Suspect]
     Active Substance: DUPILUMAB
     Indication: Asthma
     Route: 058
     Dates: start: 20241022, end: 20241022
  2. DUPIXENT [Suspect]
     Active Substance: DUPILUMAB
     Indication: Pneumonia
     Dosage: 300 MG, QOW
     Route: 058
     Dates: start: 20241022, end: 20241120
  3. DUPIXENT [Suspect]
     Active Substance: DUPILUMAB
     Indication: Eosinophilic pneumonia chronic
  4. DUPIXENT [Suspect]
     Active Substance: DUPILUMAB
     Indication: Eosinophilic pneumonia chronic
     Route: 058
  5. SYMBICORT [Concomitant]
     Active Substance: BUDESONIDE\FORMOTEROL FUMARATE DIHYDRATE
  6. NUCALA [Concomitant]
     Active Substance: MEPOLIZUMAB
  7. EPIPEN [Concomitant]
     Active Substance: EPINEPHRINE
  8. OLOPATADINE [Concomitant]
     Active Substance: OLOPATADINE

REACTIONS (9)
  - Eosinophilic pneumonia chronic [Unknown]
  - Eosinophilia [Recovering/Resolving]
  - Dyspnoea [Unknown]
  - Lung infiltration [Unknown]
  - Eosinophil count increased [Unknown]
  - Rash erythematous [Unknown]
  - Rash [Unknown]
  - Rash pruritic [Unknown]
  - Off label use [Unknown]

NARRATIVE: CASE EVENT DATE: 20241111
